FAERS Safety Report 23411407 (Version 2)
Quarter: 2025Q2

REPORT INFORMATION
  Report Type: Spontaneous
  Country: US (occurrence: US)
  Receive Date: 20240117
  Receipt Date: 20250505
  Transmission Date: 20250717
  Serious: Yes (Hospitalization)
  Sender: BAYER HEALTHCARE PHARMACEUTICALS INC.
  Company Number: US-BAYER-2024A010408

PATIENT
  Age: 47 Year
  Sex: Female

DRUGS (2)
  1. MIRENA [Suspect]
     Active Substance: LEVONORGESTREL
     Indication: Intrauterine contraception
     Dosage: 20?G/DAY
     Route: 015
     Dates: start: 202212
  2. ZEJULA [Concomitant]
     Active Substance: NIRAPARIB
     Indication: Ovarian neoplasm

REACTIONS (6)
  - Surgery [Recovering/Resolving]
  - Vomiting [None]
  - Nausea [None]
  - Abdominal pain [None]
  - Abdominal pain lower [None]
  - Constipation [None]
